FAERS Safety Report 22630413 (Version 1)
Quarter: 2023Q2

REPORT INFORMATION
  Report Type: Report from Study
  Country: ES (occurrence: ES)
  Receive Date: 20230622
  Receipt Date: 20230622
  Transmission Date: 20230722
  Serious: Yes (Hospitalization)
  Sender: FDA-Public Use
  Company Number: ES-ELI_LILLY_AND_COMPANY-ES202212009874

PATIENT
  Age: 50 Year
  Sex: Female
  Weight: 85 kg

DRUGS (11)
  1. ABEMACICLIB [Suspect]
     Active Substance: ABEMACICLIB
     Indication: Breast cancer metastatic
     Dosage: UNK UNK, UNKNOWN
     Route: 048
     Dates: start: 20211210
  2. ABEMACICLIB [Suspect]
     Active Substance: ABEMACICLIB
     Dosage: 100 MG, UNKNOWN
     Route: 048
     Dates: start: 202209
  3. ABEMACICLIB [Suspect]
     Active Substance: ABEMACICLIB
     Dosage: UNK UNK, UNKNOWN
     Route: 065
  4. ABEMACICLIB [Suspect]
     Active Substance: ABEMACICLIB
     Dosage: 100 MG, UNKNOWN
     Route: 048
  5. LOPERAMIDE [Suspect]
     Active Substance: LOPERAMIDE
     Indication: Diarrhoea
     Dosage: UNK UNK, UNKNOWN
     Route: 065
  6. OMEPRAZOLE [Suspect]
     Active Substance: OMEPRAZOLE
     Indication: Abdominal pain upper
     Dosage: UNK UNK, UNKNOWN
     Route: 065
  7. LETROZOLE [Concomitant]
     Active Substance: LETROZOLE
     Indication: Breast cancer metastatic
  8. GOSERELIN [Concomitant]
     Active Substance: GOSERELIN
     Indication: Product used for unknown indication
  9. ZOMETA [Concomitant]
     Active Substance: ZOLEDRONIC ACID
     Indication: Product used for unknown indication
  10. POTASSIUM [Concomitant]
     Active Substance: POTASSIUM
     Indication: Product used for unknown indication
  11. PALEXIA [Concomitant]
     Active Substance: TAPENTADOL HYDROCHLORIDE

REACTIONS (24)
  - Pyrexia [Unknown]
  - Renal impairment [Unknown]
  - Abdominal pain upper [Recovering/Resolving]
  - Dyspepsia [Recovering/Resolving]
  - Dysphagia [Unknown]
  - Feeling abnormal [Unknown]
  - Urinary tract infection [Recovering/Resolving]
  - Chromaturia [Recovered/Resolved]
  - Influenza [Unknown]
  - Skin exfoliation [Recovering/Resolving]
  - Pain of skin [Not Recovered/Not Resolved]
  - Constipation [Recovered/Resolved]
  - Blood potassium decreased [Recovering/Resolving]
  - Blood pressure increased [Recovering/Resolving]
  - Onychoclasis [Not Recovered/Not Resolved]
  - Abdominal distension [Recovering/Resolving]
  - Lymphoedema [Recovering/Resolving]
  - Body height decreased [Recovering/Resolving]
  - Heart rate increased [Recovering/Resolving]
  - Skin fissures [Not Recovered/Not Resolved]
  - Alopecia [Not Recovered/Not Resolved]
  - Diarrhoea [Recovering/Resolving]
  - Diarrhoea [Recovered/Resolved]
  - Anaemia [Recovering/Resolving]

NARRATIVE: CASE EVENT DATE: 20211201
